FAERS Safety Report 8585048-8 (Version None)
Quarter: 2012Q3

REPORT INFORMATION
  Report Type: 
  Country: None (occurrence: None)
  Receive Date: 20120810
  Receipt Date: 20120802
  Transmission Date: 20120928
  Serious: Yes (Other)
  Sender: FDA-Public Use
  Company Number: US-US-EMD SERONO, INC.-7056943

PATIENT
  Sex: Male

DRUGS (2)
  1. VITAMIN D [Concomitant]
     Indication: VITAMIN D DECREASED
  2. REBIF [Suspect]
     Indication: MULTIPLE SCLEROSIS
     Route: 058
     Dates: start: 20110415

REACTIONS (4)
  - MUSCULAR WEAKNESS [None]
  - INJECTION SITE ERYTHEMA [None]
  - OPTIC NEURITIS [None]
  - FATIGUE [None]
